FAERS Safety Report 13735518 (Version 1)
Quarter: 2017Q3

REPORT INFORMATION
  Report Type: Spontaneous
  Country: US (occurrence: US)
  Receive Date: 20170710
  Receipt Date: 20170710
  Transmission Date: 20171127
  Serious: Yes (Other)
  Sender: FDA-Public Use
  Company Number: US-PFIZER INC-2017296361

PATIENT
  Age: 92 Year
  Sex: Female

DRUGS (1)
  1. ADVIL [Suspect]
     Active Substance: IBUPROFEN
     Indication: ARTHRALGIA
     Dosage: 3 DF, DAILY (1 IN THE DAY TIME AND 2 AT NIGHT BEFORE BED)
     Dates: start: 20170701, end: 20170705

REACTIONS (5)
  - Condition aggravated [Unknown]
  - Haematochezia [Unknown]
  - Gastric haemorrhage [Unknown]
  - Gastric ulcer [Unknown]
  - Drug intolerance [Unknown]

NARRATIVE: CASE EVENT DATE: 20170705
